FAERS Safety Report 12936471 (Version 1)
Quarter: 2016Q4

REPORT INFORMATION
  Report Type: Spontaneous
  Country: US (occurrence: US)
  Receive Date: 20161113
  Receipt Date: 20161113
  Transmission Date: 20170207
  Serious: Yes (Life-Threatening, Hospitalization, Disabling)
  Sender: FDA-Public Use
  Company Number: None

PATIENT
  Age: 70 Year
  Sex: Female
  Weight: 54 kg

DRUGS (3)
  1. CIPRO [Suspect]
     Active Substance: CIPROFLOXACIN HYDROCHLORIDE
     Route: 041
  2. LEVAQUIN [Concomitant]
     Active Substance: LEVOFLOXACIN
  3. LEVOFLOXACIN. [Suspect]
     Active Substance: LEVOFLOXACIN
     Route: 041

REACTIONS (11)
  - Eating disorder [None]
  - Weight decreased [None]
  - Muscular weakness [None]
  - Anxiety [None]
  - Decreased activity [None]
  - Toxicity to various agents [None]
  - Depression [None]
  - Contraindicated product administered [None]
  - Documented hypersensitivity to administered product [None]
  - Gait disturbance [None]
  - Neuropsychiatric symptoms [None]
